FAERS Safety Report 4734294-X (Version None)
Quarter: 2005Q3

REPORT INFORMATION
  Report Type: 
  Country: None (occurrence: None)
  Receive Date: 20050802
  Receipt Date: 20050722
  Transmission Date: 20060218
  Serious: Yes (Hospitalization)
  Sender: FDA-Public Use
  Company Number: KII-2005-0017727

PATIENT
  Age: 59 Year
  Sex: Female

DRUGS (5)
  1. MORPHINE SULFATE [Suspect]
     Dosage: ORAL
     Route: 048
  2. VALPROIC ACID (VALPROIC ACID) [Suspect]
     Dosage: ORAL
     Route: 048
  3. CYCLOBENZAPRINE HCL [Concomitant]
     Dosage: ORAL
     Route: 048
  4. BENZODIAZEPINE DERIVATIVES [Suspect]
     Dosage: ORAL
     Route: 048
  5. SSRI [Suspect]
     Dosage: ORAL
     Route: 048

REACTIONS (7)
  - BLOOD POTASSIUM INCREASED [None]
  - DIARRHOEA [None]
  - LETHARGY [None]
  - MIOSIS [None]
  - MULTIPLE DRUG OVERDOSE [None]
  - OXYGEN SATURATION DECREASED [None]
  - PNEUMONIA [None]
